FAERS Safety Report 11178059 (Version 1)
Quarter: 2015Q2

REPORT INFORMATION
  Report Type: Spontaneous
  Country: US (occurrence: US)
  Receive Date: 20150610
  Receipt Date: 20150610
  Transmission Date: 20150821
  Serious: No
  Sender: FDA-Public Use
  Company Number: US-HORIZON-VIM-0034-2015

PATIENT
  Age: 60 Year
  Sex: Female

DRUGS (5)
  1. PLENDIL [Concomitant]
     Active Substance: FELODIPINE
  2. VIMOVO [Suspect]
     Active Substance: ESOMEPRAZOLE MAGNESIUM\NAPROXEN
     Indication: ARTHRITIS
     Dates: start: 20150316, end: 20150319
  3. PROZAC [Concomitant]
     Active Substance: FLUOXETINE HYDROCHLORIDE
  4. LOVASTATIN. [Concomitant]
     Active Substance: LOVASTATIN
  5. PROGESTERONE. [Concomitant]
     Active Substance: PROGESTERONE

REACTIONS (1)
  - Drug ineffective [Not Recovered/Not Resolved]

NARRATIVE: CASE EVENT DATE: 20150319
